FAERS Safety Report 11339804 (Version 1)
Quarter: 2015Q3

REPORT INFORMATION
  Report Type: Spontaneous
  Country: US (occurrence: None)
  Receive Date: 20150804
  Receipt Date: 20150804
  Transmission Date: 20151125
  Serious: No
  Sender: FDA-Public Use
  Company Number: None

PATIENT
  Age: 34 Day
  Sex: Male
  Weight: 115.67 kg

DRUGS (5)
  1. METFORMIN [Concomitant]
     Active Substance: METFORMIN HYDROCHLORIDE
  2. NORCO [Concomitant]
     Active Substance: ACETAMINOPHEN\HYDROCODONE BITARTRATE
  3. DILY VITAMIN [Concomitant]
  4. AMOX CLAV 875 MG [Suspect]
     Active Substance: AMOXICILLIN\CLAVULANATE POTASSIUM
     Indication: UPPER LIMB FRACTURE
     Dosage: TAKEN BY MOUTH
     Dates: start: 20150724, end: 20150803
  5. MOBIC [Concomitant]
     Active Substance: MELOXICAM

REACTIONS (5)
  - Dyspepsia [None]
  - Melaena [None]
  - Diarrhoea [None]
  - Headache [None]
  - Tremor [None]

NARRATIVE: CASE EVENT DATE: 20150803
